FAERS Safety Report 14948998 (Version 1)
Quarter: 2018Q2

REPORT INFORMATION
  Report Type: Report from Study
  Country: US (occurrence: US)
  Receive Date: 20180529
  Receipt Date: 20180529
  Transmission Date: 20180711
  Serious: Yes (Death, Hospitalization, Other)
  Sender: FDA-Public Use
  Company Number: PHHO2016US018348

PATIENT
  Age: 53 Year
  Sex: Female
  Weight: 77.7 kg

DRUGS (2)
  1. FEMARA [Suspect]
     Active Substance: LETROZOLE
     Indication: OVARIAN CANCER
     Dosage: 2.5 MG, UNK
     Route: 048
     Dates: start: 20161027, end: 20161201
  2. KISQALI [Suspect]
     Active Substance: RIBOCICLIB
     Indication: OVARIAN CANCER
     Dosage: 400 MG, UNK
     Route: 048
     Dates: start: 20161027, end: 20161201

REACTIONS (6)
  - Anal fistula [Unknown]
  - Sepsis [Fatal]
  - Fatigue [Unknown]
  - White blood cell count decreased [Unknown]
  - Vaginal fistula [Fatal]
  - Sinus tachycardia [Unknown]

NARRATIVE: CASE EVENT DATE: 20161201
